FAERS Safety Report 5060634-0 (Version None)
Quarter: 2006Q3

REPORT INFORMATION
  Report Type: 
  Country: None (occurrence: None)
  Receive Date: 20060719
  Receipt Date: 20060719
  Transmission Date: 20061208
  Serious: Yes (Death)
  Sender: FDA-Public Use
  Company Number: None

PATIENT
  Age: 38 Year
  Sex: Male
  Weight: 104.3273 kg

DRUGS (1)
  1. ABILIFY [Suspect]
     Indication: BIPOLAR I DISORDER
     Dosage: 15 MG 1 QD PO
     Route: 048
     Dates: start: 20060616, end: 20060616

REACTIONS (6)
  - FEELING HOT [None]
  - GRAND MAL CONVULSION [None]
  - MANIA [None]
  - MUSCULOSKELETAL STIFFNESS [None]
  - PYREXIA [None]
  - RESPIRATORY ARREST [None]
